FAERS Safety Report 24100207 (Version 1)
Quarter: 2024Q3

REPORT INFORMATION
  Report Type: Spontaneous
  Country: US (occurrence: US)
  Receive Date: 20240717
  Receipt Date: 20240717
  Transmission Date: 20241016
  Serious: No
  Sender: NOVO NORDISK
  Company Number: US-NOVOPROD-1201319

PATIENT
  Age: 63 Year

DRUGS (3)
  1. OZEMPIC [Suspect]
     Active Substance: SEMAGLUTIDE
     Indication: Blood glucose
     Dosage: UNKNOWN
     Route: 058
     Dates: start: 202211
  2. OZEMPIC [Suspect]
     Active Substance: SEMAGLUTIDE
     Dosage: 1 MG
     Route: 058
     Dates: start: 202304
  3. OZEMPIC [Suspect]
     Active Substance: SEMAGLUTIDE
     Dosage: 2.5MG
     Route: 058
     Dates: start: 202212

REACTIONS (2)
  - Weight loss poor [Unknown]
  - Off label use [Unknown]

NARRATIVE: CASE EVENT DATE: 20221201
